FAERS Safety Report 13993661 (Version 1)
Quarter: 2017Q3

REPORT INFORMATION
  Report Type: Spontaneous
  Country: US (occurrence: US)
  Receive Date: 20170920
  Receipt Date: 20170920
  Transmission Date: 20171128
  Serious: No
  Sender: FDA-Public Use
  Company Number: US-PFIZER INC-2017404691

PATIENT
  Age: 77 Year
  Sex: Female
  Weight: 57.1 kg

DRUGS (1)
  1. ADVIL [Suspect]
     Active Substance: IBUPROFEN
     Dosage: UNK, AS NEEDED

REACTIONS (2)
  - Fluid retention [Unknown]
  - Heart rate irregular [Unknown]
